FAERS Safety Report 8336924-2 (Version None)
Quarter: 2012Q2

REPORT INFORMATION
  Report Type: 
  Country: None (occurrence: None)
  Receive Date: 20120504
  Receipt Date: 20120424
  Transmission Date: 20120825
  Serious: Yes (Hospitalization, Other)
  Sender: FDA-Public Use
  Company Number: CO-AMGEN-COLSP2012017236

PATIENT
  Age: 37 Year
  Sex: Male

DRUGS (3)
  1. ENBREL [Suspect]
     Indication: RHEUMATOID ARTHRITIS
     Dosage: 50 MG, WEEKLY
     Route: 058
     Dates: start: 20120214
  2. ARAVA [Concomitant]
     Dosage: UNK
  3. PREDNISOLONE ACETATE [Concomitant]
     Dosage: UNK

REACTIONS (5)
  - MALAISE [None]
  - ABDOMINAL PAIN [None]
  - ARTHRALGIA [None]
  - GASTROENTERITIS [None]
  - IMMUNODEFICIENCY [None]
